FAERS Safety Report 18202467 (Version 1)
Quarter: 2020Q3

REPORT INFORMATION
  Report Type: Spontaneous
  Country: US (occurrence: US)
  Receive Date: 20200827
  Receipt Date: 20200827
  Transmission Date: 20201103
  Serious: No
  Sender: FDA-Public Use
  Company Number: None

PATIENT
  Age: 73 Year
  Sex: Female

DRUGS (1)
  1. REVLIMID [Suspect]
     Active Substance: LENALIDOMIDE
     Indication: PLASMA CELL MYELOMA
     Dosage: ON HOLD
     Route: 048
     Dates: start: 20160328

REACTIONS (5)
  - Dyspnoea [None]
  - SARS-CoV-2 test positive [None]
  - Asthenia [None]
  - Pyrexia [None]
  - Cough [None]

NARRATIVE: CASE EVENT DATE: 20200806
